FAERS Safety Report 4335740-6 (Version None)
Quarter: 2004Q2

REPORT INFORMATION
  Report Type: 
  Country: None (occurrence: None)
  Receive Date: 20040409
  Receipt Date: 20040401
  Transmission Date: 20050107
  Serious: Yes (Hospitalization)
  Sender: FDA-Public Use
  Company Number: PHEH2004US03774

PATIENT
  Age: 73 Year
  Sex: Male

DRUGS (14)
  1. NEORAL [Suspect]
     Indication: HEART TRANSPLANT
     Dosage: 225 MG, BID
     Route: 048
     Dates: end: 20031125
  2. CELLCEPT [Concomitant]
  3. PREDNISONE [Concomitant]
  4. PRAVACHOL [Concomitant]
  5. ECOTRIN [Concomitant]
  6. BACTRIM [Concomitant]
  7. ACYCLOVIR [Concomitant]
  8. PYRIMETHAMINE [Concomitant]
  9. LEUCOVORIN CALCIUM [Concomitant]
  10. MATERNA 1.60 [Concomitant]
  11. CITRACAL [Concomitant]
  12. FERROUS GLUCONATE [Concomitant]
  13. PEPCID [Concomitant]
  14. COLACE [Concomitant]

REACTIONS (4)
  - BLINDNESS [None]
  - INTRACRANIAL PRESSURE INCREASED [None]
  - OPTIC ISCHAEMIC NEUROPATHY [None]
  - PAPILLOEDEMA [None]
